FAERS Safety Report 25406543 (Version 4)
Quarter: 2025Q3

REPORT INFORMATION
  Report Type: Report from Study
  Country: US (occurrence: US)
  Receive Date: 20250606
  Receipt Date: 20250721
  Transmission Date: 20251020
  Serious: Yes (Other)
  Sender: MALLINCKRODT
  Company Number: US-MALLINCKRODT-MNK202500758

PATIENT
  Age: 69 Year
  Sex: Female

DRUGS (3)
  1. CORTICOTROPIN [Suspect]
     Active Substance: CORTICOTROPIN
     Indication: Keratitis
  2. CORTICOTROPIN [Suspect]
     Active Substance: CORTICOTROPIN
  3. PREDNISONE [Suspect]
     Active Substance: PREDNISONE
     Indication: Product used for unknown indication

REACTIONS (9)
  - Fall [Unknown]
  - Hand fracture [Unknown]
  - Balance disorder [Unknown]
  - Blood iron decreased [Unknown]
  - Blood pressure decreased [Unknown]
  - Pneumonia [Unknown]
  - Hypersomnia [Unknown]
  - Weight increased [Unknown]
  - Blood potassium decreased [Unknown]

NARRATIVE: CASE EVENT DATE: 20250501
